FAERS Safety Report 4337757-4 (Version None)
Quarter: 2004Q2

REPORT INFORMATION
  Report Type: 
  Country: None (occurrence: None)
  Receive Date: 20040407
  Receipt Date: 20040324
  Transmission Date: 20050107
  Serious: Yes (Life-Threatening, Hospitalization)
  Sender: FDA-Public Use
  Company Number: NSADSS2002020088

PATIENT
  Age: 71 Year
  Sex: Female

DRUGS (8)
  1. REMICADE [Suspect]
     Indication: RHEUMATOID ARTHRITIS
     Dosage: 200 MG, 1 IN 1 AS NECESSARY, INTRAVENOUS DRIP
     Route: 041
     Dates: start: 20010707, end: 20010707
  2. REMICADE [Suspect]
     Indication: RHEUMATOID ARTHRITIS
     Dosage: 200 MG, 1 IN 1 AS NECESSARY, INTRAVENOUS DRIP
     Route: 041
     Dates: start: 20010827, end: 20010827
  3. METHOTREXATE [Concomitant]
  4. ACFOL (FOLIC ACID) [Concomitant]
  5. NSAID (NSAID'S) [Concomitant]
  6. CORTICOSTEROIDS NOS (CORTICOSTEROIDS) [Concomitant]
  7. OMEPRAZOLE [Concomitant]
  8. CALCIUM WITH VITAMIN D (CALCIUM WITH VITAMIN D) [Concomitant]

REACTIONS (1)
  - TUBERCULOSIS [None]
